FAERS Safety Report 5513727-5 (Version None)
Quarter: 2007Q4

REPORT INFORMATION
  Report Type: 
  Country: None (occurrence: None)
  Receive Date: 20071113
  Receipt Date: 20071101
  Transmission Date: 20080405
  Serious: Yes (Disabling, Other)
  Sender: FDA-Public Use
  Company Number: PHBS2007US18486

PATIENT
  Age: 66 Year
  Sex: Male

DRUGS (4)
  1. CYCLOSPORINE [Suspect]
     Indication: HEART TRANSPLANT
     Dosage: 175 MG/DAY
     Route: 065
  2. MYCOPHENOLATE MOFETIL [Suspect]
     Indication: HEART TRANSPLANT
     Dosage: 3 G/DAY
     Route: 065
  3. CARDIAC THERAPY [Concomitant]
  4. ANTIDIABETICS [Concomitant]

REACTIONS (23)
  - ACID FAST BACILLI INFECTION [None]
  - ANTERIOR CHAMBER INFLAMMATION [None]
  - CATARACT SUBCAPSULAR [None]
  - ENDOPHTHALMITIS [None]
  - EPISCLERITIS [None]
  - EYE EXCISION [None]
  - GLAUCOMA [None]
  - GRANULOMA [None]
  - HYPOPYON [None]
  - INTRAOCULAR PRESSURE INCREASED [None]
  - IRIDOCYCLITIS [None]
  - IRITIS [None]
  - MYCOBACTERIAL INFECTION [None]
  - OCULAR HYPERAEMIA [None]
  - OPTIC DISC DISORDER [None]
  - PUPILLARY DISORDER [None]
  - SKIN NODULE [None]
  - SUBCUTANEOUS ABSCESS [None]
  - SUBCUTANEOUS NODULE [None]
  - ULCERATIVE KERATITIS [None]
  - VISION BLURRED [None]
  - VISUAL ACUITY REDUCED [None]
  - VITRECTOMY [None]
